FAERS Safety Report 22314290 (Version 1)
Quarter: 2023Q2

REPORT INFORMATION
  Report Type: Report from Study
  Country: BR (occurrence: BR)
  Receive Date: 20230512
  Receipt Date: 20230512
  Transmission Date: 20230722
  Serious: Yes (Death, Hospitalization, Other)
  Sender: FDA-Public Use
  Company Number: BR-002147023-NVSC2023BR108597

PATIENT
  Age: 75 Year
  Sex: Female

DRUGS (2)
  1. KISQALI [Suspect]
     Active Substance: RIBOCICLIB
     Indication: Breast cancer
     Dosage: UNK, QD (3 PER DAY)
     Route: 065
     Dates: start: 20230405, end: 20230418
  2. LETROZOLE [Suspect]
     Active Substance: LETROZOLE
     Indication: Product used for unknown indication
     Dosage: UNK
     Route: 065

REACTIONS (14)
  - Renal failure [Fatal]
  - Septic shock [Fatal]
  - Sepsis [Fatal]
  - Delirium [Unknown]
  - Diabetes mellitus [Unknown]
  - Delusion [Unknown]
  - Decreased immune responsiveness [Unknown]
  - Hyperhidrosis [Unknown]
  - Hypertension [Unknown]
  - Blood pressure decreased [Unknown]
  - Eating disorder [Unknown]
  - Infection [Unknown]
  - Asthenia [Unknown]
  - Vomiting [Unknown]

NARRATIVE: CASE EVENT DATE: 20230401
